FAERS Safety Report 6534454-1 (Version None)
Quarter: 2009Q4

REPORT INFORMATION
  Report Type: 
  Country: None (occurrence: None)
  Receive Date: 20091228
  Receipt Date: 20090316
  Transmission Date: 20100525
  Serious: Yes (Hospitalization, Other)
  Sender: FDA-Public Use
  Company Number: 20090086

PATIENT
  Sex: Female

DRUGS (1)
  1. VENOFER [Suspect]
     Dosage: INTRAVENOUS
     Route: 042

REACTIONS (2)
  - BACK PAIN [None]
  - DYSPNOEA [None]
